FAERS Safety Report 20452579 (Version 2)
Quarter: 2022Q1

REPORT INFORMATION
  Report Type: Report from Study
  Country: US (occurrence: US)
  Receive Date: 20220210
  Receipt Date: 20220304
  Transmission Date: 20220423
  Serious: Yes (Other)
  Sender: FDA-Public Use
  Company Number: US-SHIRE-US202016194

PATIENT
  Sex: Male

DRUGS (2)
  1. MESALAMINE [Suspect]
     Active Substance: MESALAMINE
     Indication: Chronic kidney disease
     Dosage: UNK
     Route: 048
     Dates: start: 20220103
  2. MESALAMINE [Suspect]
     Active Substance: MESALAMINE
     Dosage: 2 DOSAGE FORM, QD
     Route: 048

REACTIONS (9)
  - Haematochezia [Unknown]
  - Crohn^s disease [Unknown]
  - Dyschezia [Unknown]
  - Product availability issue [Unknown]
  - Incorrect dose administered [Unknown]
  - Muscle spasms [Unknown]
  - Musculoskeletal discomfort [Unknown]
  - Feeling abnormal [Unknown]
  - Off label use [Unknown]
